FAERS Safety Report 7262122-X (Version None)
Quarter: 2011Q1

REPORT INFORMATION
  Report Type: 
  Country: None (occurrence: None)
  Receive Date: 20110130
  Receipt Date: 20101214
  Transmission Date: 20110831
  Serious: No
  Sender: FDA-Public Use
  Company Number: US-ABBOTT-10P-163-0691408-00

PATIENT
  Age: 68 Year
  Sex: Female

DRUGS (11)
  1. PRAVASTATIN [Concomitant]
     Indication: BLOOD CHOLESTEROL
  2. DIOVAN HCT [Concomitant]
     Indication: BLOOD PRESSURE
     Dosage: 80/12.5MG DAILY
  3. VERAMYST [Concomitant]
     Indication: HYPERSENSITIVITY
  4. HUMIRA [Suspect]
     Indication: PSORIASIS
     Dates: start: 20100901
  5. CALCIUM +VIT D [Concomitant]
     Indication: PRODUCT USED FOR UNKNOWN INDICATION
     Dosage: 600MG W/VIT D 200MG
  6. PRILOSEC [Concomitant]
     Indication: GASTROOESOPHAGEAL REFLUX DISEASE
  7. MULTIVIT [Concomitant]
     Indication: PRODUCT USED FOR UNKNOWN INDICATION
  8. SPIRIVA [Concomitant]
     Indication: CHRONIC OBSTRUCTIVE PULMONARY DISEASE
  9. ESTER C [Concomitant]
     Indication: PRODUCT USED FOR UNKNOWN INDICATION
  10. NADOLOL [Concomitant]
     Indication: BLOOD PRESSURE
  11. POTASSIUM [Concomitant]
     Indication: BLOOD POTASSIUM DECREASED

REACTIONS (1)
  - PLATELET COUNT DECREASED [None]
